FAERS Safety Report 6458640-4 (Version None)
Quarter: 2009Q4

REPORT INFORMATION
  Report Type: 
  Country: None (occurrence: None)
  Receive Date: 20091127
  Receipt Date: 20091116
  Transmission Date: 20100525
  Serious: Yes (Death, Other)
  Sender: FDA-Public Use
  Company Number: GR-RANBAXY-2009R3-29344

PATIENT

DRUGS (9)
  1. CEFTRIAXONE [Suspect]
     Indication: ANTIBIOTIC PROPHYLAXIS
     Route: 065
  2. CEFTRIAXONE [Suspect]
     Indication: ANTIVIRAL PROPHYLAXIS
  3. ERYTHROMYCIN [Suspect]
     Indication: ANTIBIOTIC PROPHYLAXIS
     Route: 065
  4. ERYTHROMYCIN [Suspect]
     Indication: ANTIVIRAL PROPHYLAXIS
  5. GANCICLOVIR [Suspect]
     Indication: ANTIBIOTIC PROPHYLAXIS
     Route: 065
  6. GANCICLOVIR [Suspect]
     Indication: ANTIVIRAL PROPHYLAXIS
  7. CO- TRIMOXAZOLE [Suspect]
     Indication: PNEUMOCYSTIS JIROVECI PNEUMONIA
     Dosage: 20 MG/KG + 100MG/KG
     Route: 042
  8. HYDROCORTISONE [Suspect]
     Indication: PNEUMOCYSTIS JIROVECI PNEUMONIA
     Dosage: 125 MG, TID
     Route: 042
  9. PENTAMIDINE ISETHIONATE [Suspect]
     Indication: PNEUMOCYSTIS JIROVECI PNEUMONIA
     Dosage: 4 MG/KG, QD
     Route: 042

REACTIONS (9)
  - BLOOD LACTATE DEHYDROGENASE INCREASED [None]
  - BRONCHOALVEOLAR LAVAGE ABNORMAL [None]
  - DRUG INEFFECTIVE [None]
  - GENERAL PHYSICAL HEALTH DETERIORATION [None]
  - HYPERCAPNIA [None]
  - PNEUMOTHORAX [None]
  - PULMONARY HAEMORRHAGE [None]
  - RESPIRATORY DISORDER [None]
  - TORSADE DE POINTES [None]
